FAERS Safety Report 19950196 (Version 1)
Quarter: 2021Q4

REPORT INFORMATION
  Report Type: Spontaneous
  Country: US (occurrence: US)
  Receive Date: 20211009
  Receipt Date: 20211009
  Transmission Date: 20220303
  Serious: Yes (Hospitalization)
  Sender: FDA-Public Use
  Company Number: None

PATIENT
  Age: 32 Year
  Sex: Male
  Weight: 78.2 kg

DRUGS (8)
  1. CYCLOPHOSPHAMIDE [Suspect]
     Active Substance: CYCLOPHOSPHAMIDE
     Dates: end: 20210907
  2. CYTARABINE [Concomitant]
     Active Substance: CYTARABINE
     Dates: end: 20210907
  3. DEXAMETHASONE [Concomitant]
     Active Substance: DEXAMETHASONE
     Dates: end: 20210907
  4. DOXORUBICIN HYDROCHLORIDE [Concomitant]
     Active Substance: DOXORUBICIN HYDROCHLORIDE
     Dates: end: 20210907
  5. MESNA [Concomitant]
     Active Substance: MESNA
     Dates: end: 20210907
  6. METHOTREXATE [Concomitant]
     Active Substance: METHOTREXATE
     Dates: end: 20210803
  7. PONATINIB [Suspect]
     Active Substance: PONATINIB
     Dates: end: 20210913
  8. VINCRISTINE SULFATE [Concomitant]
     Active Substance: VINCRISTINE SULFATE
     Dates: end: 20210907

REACTIONS (24)
  - Blindness unilateral [None]
  - Sudden visual loss [None]
  - Peripheral sensory neuropathy [None]
  - Pneumonia [None]
  - Enterocolitis [None]
  - Gastrointestinal wall thickening [None]
  - Pneumonia [None]
  - Neuralgia [None]
  - Pain [None]
  - Pleural effusion [None]
  - Lymphadenopathy [None]
  - Atelectasis [None]
  - Pericardial effusion [None]
  - Dizziness [None]
  - Papilloedema [None]
  - Optic nerve disorder [None]
  - Leukaemic infiltration [None]
  - Optic neuritis [None]
  - Ocular discomfort [None]
  - Post procedural discomfort [None]
  - Nausea [None]
  - Vomiting [None]
  - Diarrhoea [None]
  - Intra-abdominal fluid collection [None]

NARRATIVE: CASE EVENT DATE: 20210913
